FAERS Safety Report 9010571 (Version 4)
Quarter: 2014Q3

REPORT INFORMATION
  Report Type: Spontaneous
  Country: US (occurrence: US)
  Receive Date: 20130109
  Receipt Date: 20140731
  Transmission Date: 20150326
  Serious: No
  Sender: FDA-Public Use
  Company Number: US-009507513-1301USA002410

PATIENT
  Sex: Female
  Weight: 69.84 kg

DRUGS (1)
  1. NUVARING [Suspect]
     Active Substance: ETHINYL ESTRADIOL\ETONOGESTREL
     Indication: CONTRACEPTION
     Dosage: UNK
     Route: 067
     Dates: start: 20090219, end: 20120618

REACTIONS (7)
  - Depression [Unknown]
  - Emotional distress [Unknown]
  - Pain [Unknown]
  - Flank pain [Unknown]
  - Deep vein thrombosis [Not Recovered/Not Resolved]
  - Acne [Unknown]
  - Mass [Unknown]

NARRATIVE: CASE EVENT DATE: 2010
